FAERS Safety Report 8914130 (Version 1)
Quarter: 2012Q4

REPORT INFORMATION
  Report Type: 
  Country: US (occurrence: US)
  Receive Date: 20121119
  Receipt Date: 20121119
  Transmission Date: 20130627
  Serious: Yes (Other)
  Sender: FDA-Public Use
  Company Number: US-BAYER-2012-118036

PATIENT
  Age: 33 Year
  Sex: Female

DRUGS (7)
  1. YAZ [Suspect]
     Indication: CONTRACEPTION
  2. ALLEGRA-D [FEXOFENADINE HYDROCHLORIDE,PSEUDOEPHEDRINE] [Concomitant]
     Dosage: 1 daily as needed
  3. ACYCLOVIR [ACICLOVIR] [Concomitant]
     Dosage: 400 mg, TID, 5 days
  4. NASACORT [Concomitant]
     Indication: MULTIPLE ALLERGIES
     Dosage: 2 sprays into each nostril once daily as needed
     Route: 045
  5. VICODIN [Concomitant]
     Indication: PAIN
     Dosage: 5-500 mg, 1 to 2 tablets every 6 hours as needed, 15 dispensed
     Route: 048
  6. SULFAMETHOXAZOLE W/TRIMETHOPRIM [Concomitant]
     Dosage: 1 tablet for 3 days, BID
     Route: 048
  7. IBUPROFEN [Concomitant]

REACTIONS (1)
  - Deep vein thrombosis [None]
